FAERS Safety Report 19705196 (Version 1)
Quarter: 2021Q3

REPORT INFORMATION
  Report Type: Spontaneous
  Country: US (occurrence: US)
  Receive Date: 20210815
  Receipt Date: 20210815
  Transmission Date: 20211014
  Serious: Yes (Hospitalization)
  Sender: FDA-Public Use
  Company Number: None

PATIENT
  Age: 71 Year
  Sex: Female

DRUGS (1)
  1. REBIF REBIDOSE [Suspect]
     Active Substance: INTERFERON BETA-1A
     Indication: MULTIPLE SCLEROSIS
     Dosage: OTHER DOSE:44MCG/0.5ML;  3 TIMES WEEKLY?
     Route: 058

REACTIONS (4)
  - Back pain [None]
  - Arthralgia [None]
  - Pain in extremity [None]
  - Spinal disorder [None]

NARRATIVE: CASE EVENT DATE: 20210718
